FAERS Safety Report 8032530-8 (Version None)
Quarter: 2011Q4

REPORT INFORMATION
  Report Type: 
  Country: None (occurrence: None)
  Receive Date: 20111228
  Receipt Date: 20111213
  Transmission Date: 20120403
  Serious: Yes (Other)
  Sender: FDA-Public Use
  Company Number: 2011SP059311

PATIENT
  Sex: Female
  Weight: 2.5 kg

DRUGS (2)
  1. ELOCON [Suspect]
     Indication: MATERNAL EXPOSURE DURING PREGNANCY
     Dosage: TRPL
     Route: 064
  2. EPIDUO [Suspect]
     Indication: MATERNAL EXPOSURE DURING PREGNANCY
     Dosage: TRPL
     Route: 064

REACTIONS (3)
  - FOETAL MONITORING ABNORMAL [None]
  - MATERNAL DRUGS AFFECTING FOETUS [None]
  - VACUUM EXTRACTOR DELIVERY [None]
